FAERS Safety Report 25762485 (Version 6)
Quarter: 2025Q4

REPORT INFORMATION
  Report Type: Report from Study
  Country: CN (occurrence: CN)
  Receive Date: 20250904
  Receipt Date: 20251113
  Transmission Date: 20260117
  Serious: Yes (Hospitalization)
  Sender: SANOFI AVENTIS
  Company Number: CN-SA-2025SA261979

PATIENT
  Age: 64 Year
  Sex: Female
  Weight: 54.4 kg

DRUGS (8)
  1. DOCETAXEL [Suspect]
     Active Substance: DOCETAXEL
     Indication: Non-small cell lung cancer
     Dosage: 75 MG, Q3W
     Route: 042
     Dates: start: 20250228, end: 20250711
  2. DOCETAXEL [Suspect]
     Active Substance: DOCETAXEL
     Dosage: 75 MG, Q3W
     Route: 042
     Dates: start: 20250910, end: 20250910
  3. PROMETHAZINE HYDROCHLORIDE [Concomitant]
     Active Substance: PROMETHAZINE HYDROCHLORIDE
     Indication: Prophylaxis
     Dosage: 25 MG, QD
     Dates: start: 20250711, end: 20250711
  4. ISOPHANE PROTAMINE RECOMBINANT HUMAN INSULIN [Concomitant]
     Indication: Diabetes mellitus
     Dosage: 15 IU, BID
     Dates: start: 200901
  5. CIMETIDINE [CIMETIDINE HYDROCHLORIDE] [Concomitant]
     Indication: Prophylaxis of nausea and vomiting
     Dosage: 0.4 G, TOTAL
     Dates: start: 20250711, end: 20250711
  6. ONDANSETRON HYDROCHLORIDE AND GLUCOSE [Concomitant]
     Indication: Prophylaxis of nausea and vomiting
     Dosage: 8 MG, QD (16 MG DAILY)
     Dates: start: 20250711, end: 20250713
  7. METFORMIN [Concomitant]
     Active Substance: METFORMIN HYDROCHLORIDE
     Indication: Diabetes mellitus
     Dosage: 0.5 G, BID (1 G DAILY)
     Dates: start: 200901
  8. DEXAMETHASONE ACETATE [Concomitant]
     Active Substance: DEXAMETHASONE ACETATE
     Indication: Premedication
     Dosage: 8 MG, BID (16 MG DAILY)
     Dates: start: 20250710

REACTIONS (2)
  - Arteriosclerosis coronary artery [Recovering/Resolving]
  - Sepsis [Recovered/Resolved]

NARRATIVE: CASE EVENT DATE: 20250720
